FAERS Safety Report 8576552-7 (Version None)
Quarter: 2012Q3

REPORT INFORMATION
  Report Type: 
  Country: None (occurrence: None)
  Receive Date: 20120807
  Receipt Date: 20120801
  Transmission Date: 20120928
  Serious: Yes (Other)
  Sender: FDA-Public Use
  Company Number: US-JNJFOC-20120800849

PATIENT

DRUGS (1)
  1. NUCYNTA [Suspect]
     Indication: PAIN
     Route: 065

REACTIONS (5)
  - INSOMNIA [None]
  - FEELING ABNORMAL [None]
  - DISORIENTATION [None]
  - DRUG INEFFECTIVE [None]
  - MANIA [None]
